FAERS Safety Report 6531641-3 (Version None)
Quarter: 2010Q1

REPORT INFORMATION
  Report Type: 
  Country: None (occurrence: None)
  Receive Date: 20100108
  Receipt Date: 20100105
  Transmission Date: 20100710
  Serious: Yes (Death, Hospitalization)
  Sender: FDA-Public Use
  Company Number: US-ASTRAZENECA-2010SE00262

PATIENT
  Age: 45 Year
  Sex: Female

DRUGS (9)
  1. ATENOLOL [Suspect]
     Route: 048
  2. LISINOPRIL [Suspect]
     Route: 048
  3. ETHANOL [Suspect]
     Route: 048
  4. OXYCODONE [Suspect]
     Route: 048
  5. DIAZEPAM [Suspect]
     Route: 048
  6. LORATADINE [Suspect]
     Route: 048
  7. AMITRIPTYLINE [Suspect]
     Route: 048
  8. CITALOPRAM HYDROBROMIDE [Suspect]
     Route: 048
  9. FAMOTIDINE [Suspect]
     Route: 048

REACTIONS (3)
  - CARDIAC ARREST [None]
  - DRUG TOXICITY [None]
  - RESPIRATORY ARREST [None]
